FAERS Safety Report 7125893-9 (Version None)
Quarter: 2010Q4

REPORT INFORMATION
  Report Type: 
  Country: None (occurrence: None)
  Receive Date: 20101129
  Receipt Date: 20101119
  Transmission Date: 20110411
  Serious: Yes (Death, Life-Threatening)
  Sender: FDA-Public Use
  Company Number: MX-SANOFI-AVENTIS-2010SA070804

PATIENT
  Age: 74 Year
  Sex: Female

DRUGS (1)
  1. LANTUS [Suspect]
     Indication: TYPE 2 DIABETES MELLITUS
     Dosage: 32 IU IN MORNING AND 20 IU IN AFTERNOON
     Route: 058
     Dates: start: 20070101, end: 20100101

REACTIONS (1)
  - MULTI-ORGAN FAILURE [None]
